FAERS Safety Report 4646196-8 (Version None)
Quarter: 2005Q2

REPORT INFORMATION
  Report Type: 
  Country: None (occurrence: None)
  Receive Date: 20050422
  Receipt Date: 20050422
  Transmission Date: 20051028
  Serious: No
  Sender: FDA-Public Use
  Company Number: None

PATIENT
  Sex: Male
  Weight: 72 kg

DRUGS (2)
  1. CYTARABINE [Suspect]
     Indication: ACUTE MYELOID LEUKAEMIA
     Dosage: SEE IMAGE
     Dates: start: 20050203
  2. DAUNORUBICIN [Suspect]
     Dosage: SEE IMAGE

REACTIONS (3)
  - BONE MARROW DEPRESSION [None]
  - MARROW HYPERPLASIA [None]
  - MEGAKARYOCYTES DECREASED [None]
